FAERS Safety Report 5287147-5 (Version None)
Quarter: 2007Q1

REPORT INFORMATION
  Report Type: 
  Country: None (occurrence: None)
  Receive Date: 20070116
  Receipt Date: 20061015
  Transmission Date: 20070707
  Serious: No
  Sender: FDA-Public Use
  Company Number: 2006SP003673

PATIENT
  Age: 64 Year
  Sex: Female
  Weight: 237.5 kg

DRUGS (6)
  1. LUNESTA [Suspect]
     Indication: INSOMNIA
     Dosage: SEE IMAGE
     Route: 048
     Dates: start: 20061009, end: 20061010
  2. LUNESTA [Suspect]
     Indication: INSOMNIA
     Dosage: SEE IMAGE
     Route: 048
     Dates: start: 20061015
  3. TEMAZEPAM [Concomitant]
  4. IMIPRAMINE [Concomitant]
  5. VERAPAMIL [Concomitant]
  6. ATORVASTATIN CALCIUM [Concomitant]

REACTIONS (4)
  - CRYING [None]
  - DEPRESSION [None]
  - INSOMNIA [None]
  - TINNITUS [None]
